FAERS Safety Report 8794823 (Version 1)
Quarter: 2012Q4

REPORT INFORMATION
  Report Type: 
  Country: CH (occurrence: CH)
  Receive Date: 20120917
  Receipt Date: 20120917
  Transmission Date: 20130627
  Serious: Yes (Death)
  Sender: FDA-Public Use
  Company Number: CH-ROCHE-1120943

PATIENT
  Age: 58 Year
  Sex: Female
  Weight: 57 kg

DRUGS (14)
  1. TOREM [Suspect]
     Indication: PRODUCT USED FOR UNKNOWN INDICATION
     Route: 048
  2. FERINJECT [Suspect]
     Indication: PRODUCT USED FOR UNKNOWN INDICATION
     Route: 042
     Dates: start: 20120804
  3. MOTILIUM [Suspect]
     Indication: PRODUCT USED FOR UNKNOWN INDICATION
     Route: 048
  4. ZOLOFT [Suspect]
     Indication: PRODUCT USED FOR UNKNOWN INDICATION
     Route: 048
  5. ZITHROMAX [Suspect]
     Indication: PRODUCT USED FOR UNKNOWN INDICATION
     Route: 048
  6. NEXIUM [Suspect]
     Indication: PRODUCT USED FOR UNKNOWN INDICATION
     Route: 048
  7. DIGOXIN [Concomitant]
     Route: 048
  8. ALDACTONE [Concomitant]
     Route: 048
  9. MAGNESIOCARD [Concomitant]
     Route: 048
  10. FLATULEX [Concomitant]
     Route: 048
  11. SPIRIVA [Concomitant]
     Route: 065
  12. ALUCOL GEL [Concomitant]
     Route: 065
  13. CANDESARTAN [Concomitant]
     Route: 065
  14. BELOC-ZOK [Concomitant]
     Route: 048

REACTIONS (6)
  - Type I hypersensitivity [Fatal]
  - Dyspnoea [Fatal]
  - Bradycardia [Fatal]
  - Hypotension [Fatal]
  - Anaphylactic shock [None]
  - Coma [None]
